FAERS Safety Report 5947145-2 (Version None)
Quarter: 2008Q4

REPORT INFORMATION
  Report Type: 
  Country: None (occurrence: None)
  Receive Date: 20081106
  Receipt Date: 20081024
  Transmission Date: 20090506
  Serious: Yes (Death)
  Sender: FDA-Public Use
  Company Number: 2008AL011431

PATIENT
  Sex: Male

DRUGS (20)
  1. DIGOXIN [Suspect]
     Indication: HYPERTENSION
     Dosage: 0.125MG, PO
     Route: 048
     Dates: start: 20061129
  2. ALLOPURINOL [Concomitant]
  3. KLOR-CON [Concomitant]
  4. NORVASC [Concomitant]
  5. FUROSEMIDE [Concomitant]
  6. FOLBIC [Concomitant]
  7. METHIMAZOLE [Concomitant]
  8. CEPHALEXIN [Concomitant]
  9. HYDROCO [Concomitant]
  10. ALPRAZOLAM [Concomitant]
  11. TOPROL-XL [Concomitant]
  12. LISINOPRIL [Concomitant]
  13. PLAVIX [Concomitant]
  14. CHANTIX [Concomitant]
  15. AMOXICILLIN [Concomitant]
  16. PHENAVENT [Concomitant]
  17. SIMVASTATIN [Concomitant]
  18. DOXAZOSIN MESYLATE [Concomitant]
  19. WARFARIN SODIUM [Concomitant]
  20. METOPROLOL TARTRATE [Concomitant]

REACTIONS (4)
  - BLOOD PRESSURE FLUCTUATION [None]
  - CARDIAC DISORDER [None]
  - DIZZINESS [None]
  - NAUSEA [None]
